FAERS Safety Report 5153124-8 (Version None)
Quarter: 2006Q4

REPORT INFORMATION
  Report Type: 
  Country: None (occurrence: None)
  Receive Date: 20061117
  Receipt Date: 20060912
  Transmission Date: 20070319
  Serious: Yes (Other)
  Sender: FDA-Public Use
  Company Number: GB-GLAXOSMITHKLINE-B0437812A

PATIENT
  Sex: Male

DRUGS (1)
  1. SERETIDE [Suspect]
     Indication: DRUG USE FOR UNKNOWN INDICATION
     Dosage: 500MCG UNKNOWN
     Route: 055
     Dates: start: 20060906, end: 20060907

REACTIONS (6)
  - DEVICE FAILURE [None]
  - DYSGEUSIA [None]
  - GENERAL PHYSICAL HEALTH DETERIORATION [None]
  - ILL-DEFINED DISORDER [None]
  - PANIC REACTION [None]
  - PHARMACEUTICAL PRODUCT COMPLAINT [None]
